FAERS Safety Report 18100011 (Version 1)
Quarter: 2020Q3

REPORT INFORMATION
  Report Type: Report from Study
  Country: TR (occurrence: TR)
  Receive Date: 20200731
  Receipt Date: 20200731
  Transmission Date: 20201103
  Serious: Yes (Life-Threatening, Hospitalization)
  Sender: FDA-Public Use
  Company Number: TR-JNJFOC-20190729052

PATIENT
  Age: 69 Year
  Sex: Male
  Weight: 52.6 kg

DRUGS (1)
  1. ERDAFITINIB. [Suspect]
     Active Substance: ERDAFITINIB
     Indication: TRANSITIONAL CELL CARCINOMA
     Route: 048
     Dates: start: 20190213, end: 20190705

REACTIONS (1)
  - Haematuria [Recovered/Resolved]

NARRATIVE: CASE EVENT DATE: 20190706
